FAERS Safety Report 11783736 (Version 1)
Quarter: 2015Q4

REPORT INFORMATION
  Report Type: Spontaneous
  Country: US (occurrence: US)
  Receive Date: 20151127
  Receipt Date: 20151127
  Transmission Date: 20160305
  Serious: No
  Sender: FDA-Public Use
  Company Number: US-ASTRAZENECA-2015SF11952

PATIENT
  Sex: Female

DRUGS (2)
  1. BREO ELLIPTA [Concomitant]
     Active Substance: FLUTICASONE FUROATE\VILANTEROL TRIFENATATE
     Route: 055
     Dates: start: 201504
  2. TUDORZA PRESSAIR [Suspect]
     Active Substance: ACLIDINIUM BROMIDE
     Indication: LUNG DISORDER
     Dosage: 400MCG 1 PUFF TWICE A DAY
     Route: 055
     Dates: start: 201504, end: 20151001

REACTIONS (3)
  - Malaise [Unknown]
  - Multiple allergies [Unknown]
  - Cough [Unknown]
